FAERS Safety Report 8178796-5 (Version None)
Quarter: 2012Q1

REPORT INFORMATION
  Report Type: 
  Country: None (occurrence: None)
  Receive Date: 20120301
  Receipt Date: 20120222
  Transmission Date: 20120608
  Serious: Yes (Death, Hospitalization, Other)
  Sender: FDA-Public Use
  Company Number: FR-BRISTOL-MYERS SQUIBB COMPANY-15354970

PATIENT
  Age: 67 Year
  Sex: Male

DRUGS (10)
  1. SPRYCEL [Suspect]
     Indication: CHRONIC MYELOID LEUKAEMIA
     Dosage: STARTED AS STUDY DRUG ON 24-JUN-2005;INITIALLY 140MG/DAY UP TO JUL2006.
     Dates: end: 20100401
  2. LASIX [Concomitant]
  3. ASPIRIN [Concomitant]
     Dosage: 75 MG MAINTAINED.
  4. PERINDOPRIL ERBUMINE [Concomitant]
  5. NEXIUM [Concomitant]
  6. AMLODIPINE BESYLATE [Concomitant]
     Dosage: DOSE INCREASED TO 5MGX2/DAY
  7. BISOPROLOL FUMARATE [Concomitant]
  8. NILOTINIB [Suspect]
     Indication: CHRONIC MYELOID LEUKAEMIA
     Dates: start: 20100401
  9. PLAVIX [Concomitant]
     Dosage: STOPPED
     Dates: end: 20100101
  10. PRAVASTATIN [Concomitant]

REACTIONS (7)
  - ISCHAEMIC CARDIOMYOPATHY [None]
  - PULMONARY ARTERIAL HYPERTENSION [None]
  - ANAEMIA [None]
  - CARDIAC FAILURE [None]
  - PERICARDIAL EFFUSION [None]
  - PLEURAL EFFUSION [None]
  - PLEURAL HAEMORRHAGE [None]
